FAERS Safety Report 11870371 (Version 1)
Quarter: 2015Q4

REPORT INFORMATION
  Report Type: Spontaneous
  Country: US (occurrence: US)
  Receive Date: 20151228
  Receipt Date: 20151228
  Transmission Date: 20160305
  Serious: No
  Sender: FDA-Public Use
  Company Number: PHEH2015US027170

PATIENT
  Age: 64 Year
  Sex: Female

DRUGS (1)
  1. TYKERB [Suspect]
     Active Substance: LAPATINIB DITOSYLATE
     Indication: BREAST CANCER
     Dosage: 500 MG, QD
     Route: 048
     Dates: start: 20141216

REACTIONS (1)
  - Crying [Unknown]

NARRATIVE: CASE EVENT DATE: 20151206
